FAERS Safety Report 10678631 (Version 1)
Quarter: 2014Q4

REPORT INFORMATION
  Report Type: Spontaneous
  Country: CA (occurrence: None)
  Receive Date: 20141223
  Receipt Date: 20141223
  Transmission Date: 20150529
  Serious: Yes (Other)
  Sender: FDA-Public Use
  Company Number: INT_00570_2014

PATIENT
  Age: 54 Year
  Sex: Female

DRUGS (2)
  1. ETOPOSIDE. [Suspect]
     Active Substance: ETOPOSIDE
     Indication: LUNG NEOPLASM MALIGNANT
     Dosage: (75MG/M2 [ON DAY 1, AT LEAST 2 CYCLES] INTRAVENOUS (NOT OTHERWISE SPECIFIED))
     Route: 042
  2. CISPLATIN. [Suspect]
     Active Substance: CISPLATIN
     Indication: LUNG NEOPLASM MALIGNANT
     Dosage: ([DF, AT LEAST 2 CYCLES])

REACTIONS (1)
  - Aortic thrombosis [None]
